FAERS Safety Report 10393249 (Version 1)
Quarter: 2014Q3

REPORT INFORMATION
  Report Type: Spontaneous
  Country: US (occurrence: US)
  Receive Date: 20140819
  Receipt Date: 20140819
  Transmission Date: 20150326
  Serious: Yes (Hospitalization)
  Sender: FDA-Public Use
  Company Number: US-009507513-1408USA010505

PATIENT
  Sex: Female
  Weight: 74.83 kg

DRUGS (1)
  1. NUVARING [Suspect]
     Active Substance: ETHINYL ESTRADIOL\ETONOGESTREL
     Indication: CONTRACEPTION
     Dosage: UNK
     Dates: start: 20110131, end: 20110707

REACTIONS (5)
  - Iron deficiency anaemia [Unknown]
  - Menstrual disorder [Not Recovered/Not Resolved]
  - Intracranial venous sinus thrombosis [Unknown]
  - Transient ischaemic attack [Unknown]
  - Transverse sinus thrombosis [Unknown]

NARRATIVE: CASE EVENT DATE: 20110723
